FAERS Safety Report 4694839-5 (Version None)
Quarter: 2005Q2

REPORT INFORMATION
  Report Type: 
  Country: None (occurrence: None)
  Receive Date: 20050620
  Receipt Date: 20050527
  Transmission Date: 20051028
  Serious: Yes (Hospitalization)
  Sender: FDA-Public Use
  Company Number: 2005SE03154

PATIENT
  Sex: Female
  Weight: 52 kg

DRUGS (4)
  1. BLOPRESS TABLETS 8 [Suspect]
     Indication: HYPERTENSION
     Route: 048
     Dates: start: 20050503, end: 20050521
  2. MEVALOTIN [Concomitant]
     Indication: HYPERLIPIDAEMIA
     Route: 048
     Dates: start: 20050201, end: 20050521
  3. GASTER D [Concomitant]
     Indication: GASTRITIS
     Route: 048
     Dates: start: 20050201, end: 20050521
  4. GASMOTIN [Concomitant]
     Indication: GASTRITIS
     Route: 048
     Dates: start: 20050201, end: 20050521

REACTIONS (1)
  - TOXIC SKIN ERUPTION [None]
